FAERS Safety Report 5592395-0 (Version None)
Quarter: 2008Q1

REPORT INFORMATION
  Report Type: 
  Country: None (occurrence: None)
  Receive Date: 20080111
  Receipt Date: 20071228
  Transmission Date: 20080703
  Serious: Yes (Hospitalization)
  Sender: FDA-Public Use
  Company Number: 2007-05979

PATIENT
  Age: 44 Year
  Sex: Female

DRUGS (1)
  1. IBUPROFEN [Suspect]
     Indication: DYSMENORRHOEA
     Dosage: 8 TABLET IN ONE DAY, ORAL
     Route: 048
     Dates: start: 20060301, end: 20060301

REACTIONS (1)
  - HAEMOLYTIC URAEMIC SYNDROME [None]
